FAERS Safety Report 11043204 (Version 1)
Quarter: 2015Q2

REPORT INFORMATION
  Report Type: Spontaneous
  Country: US (occurrence: None)
  Receive Date: 20150416
  Receipt Date: 20150416
  Transmission Date: 20150821
  Serious: Yes (Other)
  Sender: FDA-Public Use
  Company Number: None

PATIENT
  Age: 30 Year
  Sex: Female
  Weight: 152.41 kg

DRUGS (2)
  1. IRON SUPPLEMEN [Concomitant]
  2. CONTRAVE [Suspect]
     Active Substance: BUPROPION HYDROCHLORIDE\NALTREXONE HYDROCHLORIDE
     Indication: WEIGHT DECREASED
     Dosage: INCREASING DOSAGE; WEEK ONE TAKE ONE
     Route: 048
     Dates: start: 20150212, end: 20150328

REACTIONS (1)
  - Seizure [None]

NARRATIVE: CASE EVENT DATE: 20150301
